FAERS Safety Report 7421686-3 (Version None)
Quarter: 2011Q2

REPORT INFORMATION
  Report Type: 
  Country: None (occurrence: None)
  Receive Date: 20110418
  Receipt Date: 20110413
  Transmission Date: 20111010
  Serious: Yes (Other)
  Sender: FDA-Public Use
  Company Number: GB-PFIZER INC-2011081258

PATIENT
  Age: 67 Year
  Sex: Female

DRUGS (1)
  1. LYRICA [Suspect]
     Dosage: 300 MG, UNK
     Dates: start: 20100901

REACTIONS (3)
  - DYSPHONIA [None]
  - GAIT DISTURBANCE [None]
  - DEAFNESS UNILATERAL [None]
